FAERS Safety Report 9034981 (Version 1)
Quarter: 2013Q1

REPORT INFORMATION
  Report Type: Spontaneous
  Country: IN (occurrence: None)
  Receive Date: 20130115
  Receipt Date: 20130115
  Transmission Date: 20140127
  Serious: Yes (Disabling, Other)
  Sender: FDA-Public Use
  Company Number: IN-1195792

PATIENT
  Age: 55 Year
  Sex: Male

DRUGS (4)
  1. BSS INTRAOCULAR SOLUTION (BSS) [Suspect]
     Indication: CATARACT OPERATION
     Route: 031
     Dates: start: 20121004, end: 20121004
  2. TYPAN BLUE [Concomitant]
  3. HYDROXYPROPYL METHYLCELLULOSE [Concomitant]
  4. ZYMAXID [Concomitant]

REACTIONS (5)
  - Toxic anterior segment syndrome [None]
  - Visual acuity reduced [None]
  - Keratitis [None]
  - Iritis [None]
  - Hypopyon [None]
